FAERS Safety Report 17791232 (Version 1)
Quarter: 2020Q2

REPORT INFORMATION
  Report Type: Report from Study
  Country: AU (occurrence: AU)
  Receive Date: 20200515
  Receipt Date: 20200515
  Transmission Date: 20200714
  Serious: No
  Sender: FDA-Public Use
  Company Number: AU-JNJFOC-20180511158

PATIENT
  Sex: Female

DRUGS (1)
  1. STELARA [Suspect]
     Active Substance: USTEKINUMAB
     Indication: PSORIASIS
     Route: 058
     Dates: start: 20180319

REACTIONS (3)
  - Splenectomy [Unknown]
  - Pruritus [Unknown]
  - Antibiotic level therapeutic [Unknown]

NARRATIVE: CASE EVENT DATE: 2018
